FAERS Safety Report 15663831 (Version 2)
Quarter: 2019Q1

REPORT INFORMATION
  Report Type: Report from Study
  Country: US (occurrence: US)
  Receive Date: 20181128
  Receipt Date: 20190125
  Transmission Date: 20190417
  Serious: Yes (Death, Hospitalization)
  Sender: FDA-Public Use
  Company Number: US-ROCHE-2194269

PATIENT
  Age: 43 Year
  Sex: Female
  Weight: 57.5 kg

DRUGS (9)
  1. ATEZOLIZUMAB. [Suspect]
     Active Substance: ATEZOLIZUMAB
     Indication: METASTATIC NEOPLASM
     Dosage: DATE OF MOST RECENT DOSE OF ATEZOLIZUMAB PRIOR TO SAE (SERIOUS ADVERSE EVENT) ONSET WAS 26/SEP/2018.
     Route: 042
     Dates: start: 20180926
  2. GABAPENTIN. [Concomitant]
     Active Substance: GABAPENTIN
     Indication: NEURALGIA
     Route: 048
     Dates: start: 20170609
  3. MORPHINE [Concomitant]
     Active Substance: MORPHINE
     Route: 048
  4. METHYLPHENIDATE. [Concomitant]
     Active Substance: METHYLPHENIDATE
     Indication: FATIGUE
     Route: 048
     Dates: start: 20180213
  5. APIXABAN [Concomitant]
     Active Substance: APIXABAN
     Dosage: ANTICOAGULANT
     Route: 048
  6. LEVOTHYROXINE. [Concomitant]
     Active Substance: LEVOTHYROXINE
     Indication: HYPOTHYROIDISM
     Dosage: 125 UNIT: OTHER
     Route: 048
  7. MORPHINE [Concomitant]
     Active Substance: MORPHINE
     Indication: PAIN
     Route: 048
  8. MORPHINE [Concomitant]
     Active Substance: MORPHINE
     Indication: NEURALGIA
     Route: 048
     Dates: start: 20170609
  9. HYDROMORPHONE [Concomitant]
     Active Substance: HYDROMORPHONE
     Indication: PAIN
     Route: 042
     Dates: start: 20181002, end: 20181002

REACTIONS (4)
  - Pelvic abscess [Not Recovered/Not Resolved]
  - Malignant neoplasm progression [Fatal]
  - Failure to thrive [Not Recovered/Not Resolved]
  - Sepsis [Recovered/Resolved]

NARRATIVE: CASE EVENT DATE: 20181002
